FAERS Safety Report 7039968-6 (Version None)
Quarter: 2010Q4

REPORT INFORMATION
  Report Type: 
  Country: None (occurrence: None)
  Receive Date: 20101012
  Receipt Date: 20100909
  Transmission Date: 20110411
  Serious: Yes (Other)
  Sender: FDA-Public Use
  Company Number: DK-JNJFOC-20100907868

PATIENT
  Sex: Female

DRUGS (1)
  1. CONCERTA [Suspect]
     Indication: ATTENTION DEFICIT/HYPERACTIVITY DISORDER

REACTIONS (3)
  - ANGER [None]
  - ANXIETY [None]
  - HYPERVENTILATION [None]
